FAERS Safety Report 25140638 (Version 1)
Quarter: 2025Q1

REPORT INFORMATION
  Report Type: Other
  Country: US (occurrence: US)
  Receive Date: 20250331
  Receipt Date: 20250331
  Transmission Date: 20250408
  Serious: Yes (Other)
  Sender: CHEMI SPA
  Company Number: US-CHEMI SPA-2173958

PATIENT
  Age: 76 Year
  Sex: Female

DRUGS (1)
  1. TEMOZOLOMIDE [Suspect]
     Active Substance: TEMOZOLOMIDE
     Indication: Glioblastoma

REACTIONS (2)
  - Deep vein thrombosis [Recovering/Resolving]
  - Haemorrhage intracranial [Recovering/Resolving]
